FAERS Safety Report 4604787-4 (Version None)
Quarter: 2005Q2

REPORT INFORMATION
  Report Type: 
  Country: None (occurrence: None)
  Receive Date: 20050224
  Receipt Date: 20041102
  Transmission Date: 20051028
  Serious: Yes (Death)
  Sender: FDA-Public Use
  Company Number: 041-163-0276180-00

PATIENT
  Age: 31 Year
  Sex: Male
  Weight: 105 kg

DRUGS (11)
  1. VICODIN [Suspect]
     Indication: PAIN
  2. LEXAPRO [Suspect]
     Indication: DEPRESSION
     Dosage: 30 MG, 1 IN 1 D, PER ORAL
     Route: 048
     Dates: start: 20031113, end: 20040621
  3. CLOZAPINE [Suspect]
     Indication: SCHIZOPHRENIA
     Dosage: 300 MG, 1 IN 1 D
     Dates: start: 20040101, end: 20040621
  4. TOPIRAMATE [Concomitant]
  5. VALPROATE SODIUM [Concomitant]
  6. CYCLOBENZAPRINE HYDROCHLORIDE [Concomitant]
  7. PROMETHAZINE [Concomitant]
  8. DOXEPIN HCL [Concomitant]
  9. PROPRANOLOL HYDROCHLORIDE [Concomitant]
  10. GEMFIBROZIL [Concomitant]
  11. OVER THE COUNTER MEDICATIONS [Concomitant]

REACTIONS (3)
  - DRUG TOXICITY [None]
  - FAT TISSUE INCREASED [None]
  - UNEVALUABLE EVENT [None]
